FAERS Safety Report 4664239-2 (Version None)
Quarter: 2005Q2

REPORT INFORMATION
  Report Type: 
  Country: None (occurrence: None)
  Receive Date: 20050516
  Receipt Date: 20050513
  Transmission Date: 20051028
  Serious: Yes (Life-Threatening)
  Sender: FDA-Public Use
  Company Number: J081-002-001949

PATIENT
  Age: 67 Year
  Sex: Female
  Weight: 53 kg

DRUGS (2)
  1. ARICEPT [Suspect]
     Indication: DEMENTIA ALZHEIMER'S TYPE
     Dosage: 5 MG, 1 IN 1 D, ORAL
     Route: 048
  2. OVISOT (ACETYLCHOLINE) [Suspect]
     Indication: PRINZMETAL ANGINA
     Dosage: 100 MG, 1 IN 1 D, INTRA-ARTERIAL
     Route: 013
     Dates: start: 20050407, end: 20050407

REACTIONS (2)
  - EXTRASYSTOLES [None]
  - VENTRICULAR TACHYCARDIA [None]
